FAERS Safety Report 26127571 (Version 1)
Quarter: 2025Q4

REPORT INFORMATION
  Report Type: Spontaneous
  Country: MA (occurrence: MA)
  Receive Date: 20251206
  Receipt Date: 20251206
  Transmission Date: 20260117
  Serious: Yes (Other)
  Sender: SOMERSET THERAPEUTICS, LLC
  Company Number: MA-MIT-25-75-MA-2025-SOM-LIT-00450

PATIENT
  Age: 60 Year

DRUGS (3)
  1. BRIMONIDINE TARTRATE [Suspect]
     Active Substance: BRIMONIDINE TARTRATE
     Indication: Open angle glaucoma
     Route: 047
  2. TIMOLOL [Concomitant]
     Active Substance: TIMOLOL
     Route: 065
  3. DORZOLAMIDE [Concomitant]
     Active Substance: DORZOLAMIDE
     Route: 065

REACTIONS (1)
  - Iridocyclitis [Recovered/Resolved]
